FAERS Safety Report 10537385 (Version 1)
Quarter: 2014Q4

REPORT INFORMATION
  Report Type: Spontaneous
  Country: US (occurrence: US)
  Receive Date: 20141023
  Receipt Date: 20141023
  Transmission Date: 20150529
  Serious: No
  Sender: FDA-Public Use
  Company Number: US-BIOGENIDEC-2014BI108905

PATIENT
  Age: 60 Year
  Sex: Female

DRUGS (4)
  1. TECFIDERA [Suspect]
     Active Substance: DIMETHYL FUMARATE
     Indication: MULTIPLE SCLEROSIS
     Route: 048
  2. NUVIGIL [Concomitant]
     Active Substance: ARMODAFINIL
  3. XARELTO [Concomitant]
     Active Substance: RIVAROXABAN
  4. VOLTAREN [Concomitant]
     Active Substance: DICLOFENAC SODIUM

REACTIONS (2)
  - Dizziness [Not Recovered/Not Resolved]
  - Hot flush [Not Recovered/Not Resolved]
